FAERS Safety Report 7900487-3 (Version None)
Quarter: 2011Q4

REPORT INFORMATION
  Report Type: 
  Country: None (occurrence: None)
  Receive Date: 20111108
  Receipt Date: 20111103
  Transmission Date: 20120403
  Serious: No
  Sender: FDA-Public Use
  Company Number: US-PFIZER INC-2011270794

PATIENT
  Sex: Female
  Weight: 134 kg

DRUGS (2)
  1. LISINOPRIL [Concomitant]
     Indication: HYPERTENSION
     Dosage: 10 MG, DAILY
     Route: 048
  2. FLECTOR [Suspect]
     Indication: NECK PAIN
     Dosage: UNK
     Dates: start: 20111102

REACTIONS (1)
  - DRUG INEFFECTIVE [None]
